FAERS Safety Report 25305706 (Version 1)
Quarter: 2025Q2

REPORT INFORMATION
  Report Type: Spontaneous
  Country: IE (occurrence: IE)
  Receive Date: 20250513
  Receipt Date: 20250513
  Transmission Date: 20250717
  Serious: Yes (Death, Other)
  Sender: RANBAXY
  Company Number: IE-SUN PHARMACEUTICAL INDUSTRIES LTD-2025R1-507109

PATIENT
  Age: 55 Year
  Sex: Male

DRUGS (2)
  1. CARBOPLATIN [Suspect]
     Active Substance: CARBOPLATIN
     Indication: Small cell lung cancer
     Route: 065
  2. ETOPOSIDE [Suspect]
     Active Substance: ETOPOSIDE
     Indication: Small cell lung cancer
     Route: 065

REACTIONS (5)
  - Peripheral motor neuropathy [Fatal]
  - Motor dysfunction [Unknown]
  - Quadriplegia [Unknown]
  - Therapeutic response decreased [Unknown]
  - Paresis [Unknown]
